FAERS Safety Report 13627845 (Version 3)
Quarter: 2018Q3

REPORT INFORMATION
  Report Type: Spontaneous
  Country: US (occurrence: US)
  Receive Date: 20170607
  Receipt Date: 20180730
  Transmission Date: 20181010
  Serious: Yes (Life-Threatening, Hospitalization)
  Sender: FDA-Public Use
  Company Number: US-JNJFOC-20170604383

PATIENT
  Age: 53 Year
  Sex: Female

DRUGS (7)
  1. METFORMIN [Concomitant]
     Active Substance: METFORMIN HYDROCHLORIDE
     Indication: TYPE 2 DIABETES MELLITUS
     Route: 065
     Dates: start: 2014, end: 2016
  2. INVOKANA [Suspect]
     Active Substance: CANAGLIFLOZIN
     Indication: TYPE 2 DIABETES MELLITUS
     Route: 048
     Dates: start: 20151210, end: 20160401
  3. LOSARTAN. [Concomitant]
     Active Substance: LOSARTAN
     Indication: BLOOD PRESSURE MEASUREMENT
     Route: 065
     Dates: start: 2014
  4. ASPIRIN. [Concomitant]
     Active Substance: ASPIRIN
     Indication: CARDIAC DISORDER
     Route: 065
     Dates: start: 2004
  5. PEPCID [Concomitant]
     Active Substance: FAMOTIDINE
     Indication: PEPTIC ULCER
     Dosage: SINCE 30 YEARS
     Route: 065
  6. AMARYL [Concomitant]
     Active Substance: GLIMEPIRIDE
     Indication: TYPE 2 DIABETES MELLITUS
     Dosage: 2 MG AND 4 MG
     Route: 065
     Dates: start: 2014, end: 2016
  7. CITALOPRAM [Concomitant]
     Active Substance: CITALOPRAM HYDROBROMIDE
     Indication: ANXIETY
     Route: 065
     Dates: start: 2011

REACTIONS (10)
  - Diabetic coma [Unknown]
  - Hypokalaemia [Unknown]
  - Hypovolaemic shock [Unknown]
  - Metabolic acidosis [Unknown]
  - Acute kidney injury [Unknown]
  - Sepsis [Unknown]
  - Urinary tract infection [Unknown]
  - Acute respiratory failure [Unknown]
  - Diabetic ketoacidosis [Unknown]
  - Hypernatraemia [Unknown]

NARRATIVE: CASE EVENT DATE: 20160401
